FAERS Safety Report 10522548 (Version 5)
Quarter: 2014Q4

REPORT INFORMATION
  Report Type: Report from Study
  Country: DE (occurrence: DE)
  Receive Date: 20141016
  Receipt Date: 20141027
  Transmission Date: 20150528
  Serious: Yes (Death)
  Sender: FDA-Public Use
  Company Number: DE-009507513-1410DEU006435

PATIENT
  Age: 72 Year
  Sex: Female

DRUGS (6)
  1. QUILONUM-RETARD [Concomitant]
     Dosage: 1 DF, HS, (REPORTED AS 0-0-1)
     Route: 048
  2. NOVAMINSULFON [Concomitant]
     Active Substance: METAMIZOLE
     Dosage: FREQUENCY - 30 - 30 - 0
     Route: 048
  3. CYMBALTA [Concomitant]
     Active Substance: DULOXETINE HYDROCHLORIDE
     Dosage: 1 DF, BID, (REPORTED AS 1-0-1)
     Route: 048
  4. TEGRETAL [Concomitant]
     Active Substance: CARBAMAZEPINE
     Dosage: 0.5 DF, QID,  (REPORTED AS 1/2-1/2-1/2-1/2)
     Route: 048
  5. PEMBROLIZUMAB. [Suspect]
     Active Substance: PEMBROLIZUMAB
     Indication: METASTATIC MALIGNANT MELANOMA
     Dosage: 2 MG/KG, Q3W; TOTAL DAILY DOSE: 135 MG
     Route: 042
     Dates: start: 20140910
  6. L-THYROXIN [Concomitant]
     Active Substance: LEVOTHYROXINE SODIUM
     Dosage: 1 DF, QD, (FREQUENCY REPORTED AS  1-0-0)
     Route: 048

REACTIONS (2)
  - Pneumonia [Fatal]
  - Renal failure [Fatal]

NARRATIVE: CASE EVENT DATE: 20140916
